FAERS Safety Report 18654591 (Version 1)
Quarter: 2020Q4

REPORT INFORMATION
  Report Type: Spontaneous
  Country: NL (occurrence: NL)
  Receive Date: 20201223
  Receipt Date: 20201223
  Transmission Date: 20210114
  Serious: Yes (Other)
  Sender: FDA-Public Use
  Company Number: NVSC2020NL331565

PATIENT
  Sex: Female

DRUGS (2)
  1. PREDNISONE. [Suspect]
     Active Substance: PREDNISONE
     Indication: ARTHROPATHY
     Dosage: 10 MG, QD, 1 DAILY 10 MG 3 COURSES
     Route: 065
     Dates: start: 201904
  2. NIVOLUMAB [Suspect]
     Active Substance: NIVOLUMAB
     Indication: RENAL CELL CARCINOMA
     Dosage: 480 MG, QMO
     Route: 065
     Dates: start: 20190409, end: 201912

REACTIONS (6)
  - Hyperthyroidism [Unknown]
  - Adrenal insufficiency [Unknown]
  - Hypothyroidism [Unknown]
  - Anaphylactic shock [Unknown]
  - Atrial fibrillation [Unknown]
  - Arthropathy [Unknown]

NARRATIVE: CASE EVENT DATE: 2019
